FAERS Safety Report 23159162 (Version 1)
Quarter: 2023Q4

REPORT INFORMATION
  Report Type: Spontaneous
  Country: US (occurrence: None)
  Receive Date: 20231107
  Receipt Date: 20231107
  Transmission Date: 20240110
  Serious: Yes (Hospitalization)
  Sender: FDA-Public Use
  Company Number: None

PATIENT
  Age: 47 Year
  Sex: Female

DRUGS (1)
  1. CYANOCOBALAMIN\SEMAGLUTIDE [Suspect]
     Active Substance: CYANOCOBALAMIN\SEMAGLUTIDE
     Dosage: OTHER FREQUENCY : WEEKLY;?
     Route: 058

REACTIONS (5)
  - Nausea [None]
  - Vomiting [None]
  - Product prescribing error [None]
  - Drug dose titration not performed [None]
  - Incorrect dose administered [None]

NARRATIVE: CASE EVENT DATE: 20231020
